FAERS Safety Report 5670627-8 (Version None)
Quarter: 2008Q1

REPORT INFORMATION
  Report Type: 
  Country: None (occurrence: None)
  Receive Date: 20080314
  Receipt Date: 20080314
  Transmission Date: 20080703
  Serious: Yes (Hospitalization, Other)
  Sender: FDA-Public Use
  Company Number: None

PATIENT
  Sex: Male
  Weight: 16.4 kg

DRUGS (2)
  1. METHOTREXATE [Suspect]
     Indication: METABOLIC ALKALOSIS
     Dosage: 3500 MG X1 IV DRIP
     Route: 041
     Dates: start: 20080125, end: 20080126
  2. SODIUM BICARBONATE [Suspect]
     Indication: DRUG TOXICITY PROPHYLAXIS
     Dosage: IV DRIP
     Route: 041
     Dates: start: 20080125, end: 20080129

REACTIONS (10)
  - CARDIAC ARREST [None]
  - CONVULSION [None]
  - DRUG TOXICITY [None]
  - GAZE PALSY [None]
  - HYPOKALAEMIA [None]
  - HYPOMAGNESAEMIA [None]
  - HYPOPHOSPHATAEMIA [None]
  - ILL-DEFINED DISORDER [None]
  - METABOLIC ALKALOSIS [None]
  - MUSCULOSKELETAL STIFFNESS [None]
